FAERS Safety Report 11748510 (Version 2)
Quarter: 2015Q4

REPORT INFORMATION
  Report Type: Spontaneous
  Country: JP (occurrence: JP)
  Receive Date: 20151117
  Receipt Date: 20151216
  Transmission Date: 20160304
  Serious: Yes (Death)
  Sender: FDA-Public Use
  Company Number: JP-AMGEN-JPNCT2015078586

PATIENT
  Age: 65 Year
  Sex: Female
  Weight: 45 kg

DRUGS (7)
  1. REGPARA [Suspect]
     Active Substance: CINACALCET HYDROCHLORIDE
     Indication: PRIMARY HYPERTHYROIDISM
     Dosage: 25 MG, BID
     Route: 048
     Dates: start: 20141211, end: 20141227
  2. DECADRON [Concomitant]
     Active Substance: DEXAMETHASONE
     Indication: UTERINE CANCER
     Dosage: 1.5 MG, UNK
     Route: 048
     Dates: end: 20150105
  3. RISPERDAL [Concomitant]
     Active Substance: RISPERIDONE
     Indication: SCHIZOPHRENIA
     Dosage: 4 MG, UNK
     Route: 048
     Dates: start: 20141211, end: 20150105
  4. WARFARIN [Concomitant]
     Active Substance: WARFARIN
     Indication: JUGULAR VEIN THROMBOSIS
     Dosage: 1.5 MG, UNK
     Route: 048
     Dates: start: 20141211, end: 20141220
  5. AKINETON [Concomitant]
     Active Substance: BIPERIDEN HYDROCHLORIDE
     Indication: SCHIZOPHRENIA
     Dosage: 4 MG, UNK
     Route: 048
     Dates: start: 20141212, end: 20150105
  6. SLOW-K [Concomitant]
     Active Substance: POTASSIUM CHLORIDE
     Indication: HYPOKALAEMIA
     Dosage: 1200 MG, UNK
     Route: 048
     Dates: start: 20141217, end: 20151204
  7. LANSOPRAZOLE OD [Concomitant]
     Active Substance: LANSOPRAZOLE
     Indication: GASTRIC ULCER
     Dosage: 1.5 MG, UNK
     Route: 048
     Dates: start: 20141211, end: 20150105

REACTIONS (2)
  - Uterine cancer [Fatal]
  - Nausea [Not Recovered/Not Resolved]

NARRATIVE: CASE EVENT DATE: 20141212
